FAERS Safety Report 13177791 (Version 1)
Quarter: 2017Q1

REPORT INFORMATION
  Report Type: Report from Study
  Country: None (occurrence: CA)
  Receive Date: 20170201
  Receipt Date: 20170201
  Transmission Date: 20170428
  Serious: Yes (Hospitalization)
  Sender: FDA-Public Use
  Company Number: CA-ABBVIE-17K-028-1849283-00

PATIENT
  Age: 42 Year
  Sex: Female

DRUGS (1)
  1. HUMIRA [Suspect]
     Active Substance: ADALIMUMAB
     Indication: ANKYLOSING SPONDYLITIS
     Route: 058
     Dates: start: 20150305

REACTIONS (3)
  - Crohn^s disease [Not Recovered/Not Resolved]
  - Gastrointestinal disorder [Unknown]
  - Colitis [Not Recovered/Not Resolved]

NARRATIVE: CASE EVENT DATE: 201610
